FAERS Safety Report 8825248 (Version 1)
Quarter: 2012Q4

REPORT INFORMATION
  Report Type: 
  Country: JP (occurrence: JP)
  Receive Date: 20121004
  Receipt Date: 20121004
  Transmission Date: 20130627
  Serious: Yes (Hospitalization)
  Sender: FDA-Public Use
  Company Number: JP-AMGEN-JPNCT2012023670

PATIENT
  Age: 62 Year
  Sex: Male

DRUGS (3)
  1. PANITUMUMAB [Suspect]
     Indication: COLORECTAL CANCER
     Dosage: UNK UNK, q2wk
     Route: 041
     Dates: start: 20110804, end: 20120209
  2. TEGAFUR URACIL [Concomitant]
     Indication: COLORECTAL CANCER
     Dosage: UNK
     Route: 048
     Dates: start: 20110804
  3. CALCIUM FOLINATE [Concomitant]
     Indication: COLORECTAL CANCER
     Dosage: UNK
     Route: 048
     Dates: start: 20110804

REACTIONS (1)
  - Renal failure acute [Recovering/Resolving]
